FAERS Safety Report 8282070 (Version 2)
Quarter: 2016Q3

REPORT INFORMATION
  Report Type: Spontaneous
  Country: FR (occurrence: FR)
  Receive Date: 20111209
  Receipt Date: 20160819
  Transmission Date: 20161109
  Serious: Yes (Death, Life-Threatening, Other)
  Sender: FDA-Public Use
  Company Number: FR-PFIZER INC-2011298896

PATIENT
  Age: 36 Year
  Sex: Male

DRUGS (17)
  1. SOLUPRED /00016201/ [Concomitant]
     Active Substance: PREDNISOLONE
     Dosage: UNK
  2. ETOPOSIDE. [Suspect]
     Active Substance: ETOPOSIDE
     Dosage: 900 MG, DAILY
     Route: 042
     Dates: start: 20110301, end: 20110304
  3. METOCLOPRAMIDE. [Suspect]
     Active Substance: METOCLOPRAMIDE
     Dosage: 3 UNITS PER DAY
     Route: 042
     Dates: start: 20110305, end: 20110306
  4. LYRICA [Concomitant]
     Active Substance: PREGABALIN
     Dosage: UNK
  5. ACYCLOVIR. [Suspect]
     Active Substance: ACYCLOVIR
     Dosage: 250 MG, 3X/DAY
     Route: 042
     Dates: start: 20110305, end: 20110306
  6. KEPPRA [Concomitant]
     Active Substance: LEVETIRACETAM
     Dosage: UNK
  7. PIPERACILLIN/TAZOBACTAM [Suspect]
     Active Substance: PIPERACILLIN SODIUM\TAZOBACTAM SODIUM
     Dosage: 12 G, DAILY
     Route: 042
     Dates: start: 20110304, end: 20110306
  8. ETHYOL [Suspect]
     Active Substance: AMIFOSTINE
     Dosage: 2 UNITS PER DAY
     Route: 042
     Dates: start: 20110301, end: 20110304
  9. CARBOPLATIN. [Suspect]
     Active Substance: CARBOPLATIN
     Dosage: 899 MG, DAILY
     Route: 042
     Dates: start: 20110301, end: 20110304
  10. ARIXTRA [Suspect]
     Active Substance: FONDAPARINUX SODIUM
     Dosage: UNK
     Route: 058
     Dates: start: 20110226, end: 20110306
  11. AMIKACIN [Suspect]
     Active Substance: AMIKACIN
     Dosage: 1300 MG, DAILY
     Route: 042
     Dates: start: 20110304, end: 20110305
  12. RIVOTRIL [Concomitant]
     Active Substance: CLONAZEPAM
     Dosage: UNK
  13. ENDOXAN /00021101/ [Suspect]
     Active Substance: CYCLOPHOSPHAMIDE
     Dosage: 3200 MG, DAILY
     Route: 042
     Dates: start: 20110301, end: 20110304
  14. UROMITEXAN [Suspect]
     Active Substance: MESNA
     Dosage: 800 MG, DAILY
     Dates: start: 20110301, end: 20110304
  15. GENTAMICIN SULFATE. [Suspect]
     Active Substance: GENTAMICIN SULFATE
     Dosage: 100 MG, 3X/DAY
     Route: 048
     Dates: start: 20110302, end: 20110306
  16. INEXIUM /01479302/ [Concomitant]
     Active Substance: ESOMEPRAZOLE MAGNESIUM
     Dosage: UNK
  17. MORPHINE [Suspect]
     Active Substance: MORPHINE
     Dosage: UNK
     Route: 042
     Dates: start: 20110305, end: 20110306

REACTIONS (9)
  - Diastolic dysfunction [Fatal]
  - Cardiac tamponade [Fatal]
  - Systolic dysfunction [Fatal]
  - Myocarditis [Fatal]
  - Cardiac arrest [Fatal]
  - Hypotension [Fatal]
  - Sepsis [Fatal]
  - Anuria [Fatal]
  - Tachycardia [Fatal]

NARRATIVE: CASE EVENT DATE: 20110306
